FAERS Safety Report 9922684 (Version 2)
Quarter: 2014Q1

REPORT INFORMATION
  Report Type: Spontaneous
  Country: US (occurrence: US)
  Receive Date: 20140225
  Receipt Date: 20140225
  Transmission Date: 20141002
  Serious: No
  Sender: FDA-Public Use
  Company Number: US-MYLANLABS-2013S1001022

PATIENT
  Age: 92 Year
  Sex: Female
  Weight: 39.46 kg

DRUGS (7)
  1. METOPROLOL TARTRATE TABLETS, USP [Suspect]
     Indication: BLOOD PRESSURE INCREASED
     Route: 048
     Dates: start: 20130104, end: 20130114
  2. METOPROLOL TARTRATE TABLETS, USP [Suspect]
     Indication: AORTIC STENOSIS
     Route: 048
     Dates: start: 20130104, end: 20130114
  3. METOPROLOL TARTRATE TABLETS, USP [Suspect]
     Indication: BLOOD PRESSURE INCREASED
     Route: 048
     Dates: start: 201301, end: 201301
  4. METOPROLOL TARTRATE TABLETS, USP [Suspect]
     Indication: AORTIC STENOSIS
     Route: 048
     Dates: start: 201301, end: 201301
  5. METOPROLOL TARTRATE TABLETS, USP [Suspect]
     Indication: BLOOD PRESSURE INCREASED
     Route: 048
     Dates: start: 201301
  6. METOPROLOL TARTRATE TABLETS, USP [Suspect]
     Indication: AORTIC STENOSIS
     Route: 048
     Dates: start: 201301
  7. ASA [Concomitant]
     Route: 048

REACTIONS (3)
  - Confusional state [Recovered/Resolved]
  - Asthenia [Recovered/Resolved]
  - Decreased appetite [Recovered/Resolved]
